FAERS Safety Report 13725849 (Version 1)
Quarter: 2017Q3

REPORT INFORMATION
  Report Type: Spontaneous
  Country: US (occurrence: US)
  Receive Date: 20170706
  Receipt Date: 20170706
  Transmission Date: 20171127
  Serious: Yes (Disabling)
  Sender: FDA-Public Use
  Company Number: None

PATIENT
  Age: 52 Year
  Sex: Female
  Weight: 54.45 kg

DRUGS (9)
  1. COQ10 [Concomitant]
     Active Substance: UBIDECARENONE
  2. LEVAFLOXACIN 500MG TABLETS [Suspect]
     Active Substance: LEVOFLOXACIN
     Indication: BRONCHITIS
     Dosage: ?          OTHER STRENGTH:MG;QUANTITY:1 TABLET(S);?
     Route: 048
     Dates: start: 20170228, end: 20170303
  3. VITAMIN C [Concomitant]
     Active Substance: ASCORBIC ACID
  4. VITAMIN D3 [Concomitant]
     Active Substance: CHOLECALCIFEROL
  5. MAGNESIUM [Concomitant]
     Active Substance: MAGNESIUM
  6. ALPHA LIPOIC ACID [Concomitant]
     Active Substance: .ALPHA.-LIPOIC ACID
  7. TURMERIC [Concomitant]
     Active Substance: HERBALS\TURMERIC
  8. GABAPENTIN. [Concomitant]
     Active Substance: GABAPENTIN
  9. PROBIOTIC [Concomitant]
     Active Substance: PROBIOTICS NOS

REACTIONS (14)
  - Paraesthesia [None]
  - Muscle spasms [None]
  - Headache [None]
  - Back pain [None]
  - Chest pain [None]
  - Oropharyngeal pain [None]
  - Vision blurred [None]
  - Burning sensation [None]
  - Trigeminal neuralgia [None]
  - Insomnia [None]
  - Eye pain [None]
  - Oral discomfort [None]
  - Anxiety [None]
  - Neuropathy peripheral [None]

NARRATIVE: CASE EVENT DATE: 20170228
